FAERS Safety Report 5998688-7 (Version None)
Quarter: 2008Q4

REPORT INFORMATION
  Report Type: 
  Country: None (occurrence: None)
  Receive Date: 20081213
  Receipt Date: 20080715
  Transmission Date: 20090506
  Serious: No
  Sender: FDA-Public Use
  Company Number: US-AMGEN-KDL294982

PATIENT
  Sex: Female

DRUGS (1)
  1. ENBREL [Suspect]
     Indication: PSORIATIC ARTHROPATHY
     Route: 058

REACTIONS (7)
  - ABDOMINAL PAIN [None]
  - ALOPECIA [None]
  - CONTUSION [None]
  - FATIGUE [None]
  - HEADACHE [None]
  - SPIDER VEIN [None]
  - WEIGHT DECREASED [None]
